FAERS Safety Report 21373517 (Version 3)
Quarter: 2023Q1

REPORT INFORMATION
  Report Type: Report from Study
  Country: US (occurrence: US)
  Receive Date: 20220925
  Receipt Date: 20230208
  Transmission Date: 20230418
  Serious: Yes (Other)
  Sender: FDA-Public Use
  Company Number: US-UCBSA-2022035384

PATIENT
  Sex: Female
  Weight: 131.07 kg

DRUGS (10)
  1. XYREM [Suspect]
     Active Substance: SODIUM OXYBATE
     Indication: Narcolepsy
     Dosage: 2.25 GRAM, TWICE NIGHTLY
  2. XYREM [Suspect]
     Active Substance: SODIUM OXYBATE
     Indication: Somnolence
     Dosage: 2.5 GRAM, BID
  3. XYREM [Suspect]
     Active Substance: SODIUM OXYBATE
     Indication: Cataplexy
  4. KEPPRA XR [Suspect]
     Active Substance: LEVETIRACETAM
     Indication: Seizure
     Dosage: 500 MILLIGRAM, BID
     Dates: start: 20220331, end: 20220428
  5. HYDROCODONE BITARTRATE AND ACETAMINOPHEN [Concomitant]
     Active Substance: ACETAMINOPHEN\HYDROCODONE BITARTRATE
     Indication: Procedural pain
     Dosage: 10-325 MG
     Dates: start: 20220615
  6. TOPIRAMATE [Concomitant]
     Active Substance: TOPIRAMATE
     Indication: Seizure
     Dosage: 1 TABLET TWICE DAILY
     Dates: start: 20220428
  7. SUMATRIPTAN SUCCINATE [Concomitant]
     Active Substance: SUMATRIPTAN SUCCINATE
     Indication: Migraine
     Dosage: 1 TABLET ONCE DAILY
     Route: 048
     Dates: start: 20220428
  8. INOSITOL [Concomitant]
     Active Substance: INOSITOL
     Indication: Polycystic ovaries
     Dosage: UNK
  9. SLYND [Concomitant]
     Active Substance: DROSPIRENONE
     Indication: Product used for unknown indication
     Dosage: UNK, ONCE DAILY (QD)
     Route: 048
  10. IBUPROFEN [Concomitant]
     Active Substance: IBUPROFEN
     Indication: Product used for unknown indication
     Dosage: UNK

REACTIONS (8)
  - Adenotonsillectomy [Recovered/Resolved]
  - Seizure [Recovered/Resolved]
  - Polycystic ovaries [Not Recovered/Not Resolved]
  - Thirst [Unknown]
  - Product use issue [Unknown]
  - Insurance issue [Unknown]
  - Therapy interrupted [Unknown]
  - Product dose omission in error [Unknown]

NARRATIVE: CASE EVENT DATE: 20220101
